FAERS Safety Report 13313999 (Version 3)
Quarter: 2017Q2

REPORT INFORMATION
  Report Type: Spontaneous
  Country: IT (occurrence: IT)
  Receive Date: 20170309
  Receipt Date: 20170607
  Transmission Date: 20170830
  Serious: Yes (Hospitalization)
  Sender: FDA-Public Use
  Company Number: IT-BRACCO-006169

PATIENT
  Age: 63 Year
  Sex: Male
  Weight: 85 kg

DRUGS (14)
  1. IOPAMIRO [Suspect]
     Active Substance: IOPAMIDOL
     Indication: COMPUTERISED TOMOGRAM
     Dosage: SPEED 3.5 ML/SEC
     Route: 042
     Dates: start: 20170302, end: 20170302
  2. SIVASTIN [Concomitant]
     Active Substance: SIMVASTATIN
     Route: 048
  3. CONTRAMAL [Concomitant]
     Active Substance: TRAMADOL HYDROCHLORIDE
     Dosage: VIAL
     Route: 042
  4. FERLIXIT [Concomitant]
     Active Substance: SODIUM FERRIC GLUCONATE COMPLEX
     Dosage: VIALS
     Route: 042
  5. ROCALTROL [Concomitant]
     Active Substance: CALCITRIOL
     Route: 048
  6. EPOETIN ALFA [Concomitant]
     Active Substance: ERYTHROPOIETIN
  7. PANTORC [Concomitant]
     Active Substance: PANTOPRAZOLE SODIUM
     Route: 048
  8. NOVONORM [Concomitant]
     Active Substance: REPAGLINIDE
     Dosage: VIALS
     Route: 048
  9. LASIX [Concomitant]
     Active Substance: FUROSEMIDE
     Route: 048
  10. MONOKET [Concomitant]
     Active Substance: ISOSORBIDE MONONITRATE
  11. PREFOLIC [Concomitant]
     Active Substance: LEUCOVORIN CALCIUM
  12. RENVELA [Concomitant]
     Active Substance: SEVELAMER CARBONATE
     Route: 048
  13. PLAVIX [Concomitant]
     Active Substance: CLOPIDOGREL BISULFATE
     Route: 048
  14. DILATREND [Concomitant]
     Active Substance: CARVEDILOL
     Route: 048

REACTIONS (4)
  - Urinary incontinence [Recovered/Resolved]
  - Hyperhidrosis [Recovered/Resolved]
  - Respiratory failure [Recovered/Resolved]
  - Hypotension [Recovered/Resolved]

NARRATIVE: CASE EVENT DATE: 20170302
